FAERS Safety Report 5695373-6 (Version None)
Quarter: 2008Q2

REPORT INFORMATION
  Report Type: 
  Country: None (occurrence: None)
  Receive Date: 20080403
  Receipt Date: 20080319
  Transmission Date: 20081010
  Serious: Yes (Other)
  Sender: FDA-Public Use
  Company Number: 2008S1004707

PATIENT
  Age: 17 Year
  Sex: Female

DRUGS (4)
  1. AMNESTEEM [Suspect]
     Dosage: 20 MG; EVERY MORNING; ORAL; 40 MG; AT BEDTIME; ORAL
     Route: 048
     Dates: start: 20071107, end: 20080201
  2. AMNESTEEM [Suspect]
     Dosage: 20 MG; EVERY MORNING; ORAL; 40 MG; AT BEDTIME; ORAL
     Route: 048
     Dates: start: 20071107, end: 20080201
  3. AMNESTEEM [Suspect]
     Dosage: 40 MG; DAILY; ORAL
     Route: 048
     Dates: start: 20071005, end: 20071102
  4. ORAL CONTRACEPTIVE NOS [Concomitant]

REACTIONS (3)
  - DRUG EXPOSURE DURING PREGNANCY [None]
  - PREGNANCY [None]
  - PREGNANCY ON CONTRACEPTIVE [None]
